FAERS Safety Report 18302426 (Version 5)
Quarter: 2021Q1

REPORT INFORMATION
  Report Type: Spontaneous
  Country: JP (occurrence: JP)
  Receive Date: 20200923
  Receipt Date: 20210107
  Transmission Date: 20210419
  Serious: Yes (Life-Threatening, Other)
  Sender: FDA-Public Use
  Company Number: JP-PFIZER INC-2020365649

PATIENT
  Age: 33 Year
  Sex: Male
  Weight: 55 kg

DRUGS (6)
  1. LEUKERIN [Suspect]
     Active Substance: MERCAPTOPURINE
     Dosage: 10 MG, 1X/DAY
     Route: 048
     Dates: start: 20190213, end: 20191015
  2. IMURAN [Suspect]
     Active Substance: AZATHIOPRINE
     Indication: COLITIS ULCERATIVE
     Dosage: 50 MG, 1X/DAY
     Route: 048
     Dates: start: 20161122, end: 20170104
  3. XELJANZ [Suspect]
     Active Substance: TOFACITINIB CITRATE
     Indication: COLITIS ULCERATIVE
     Dosage: 5 MG, 2X/DAY
     Route: 048
     Dates: start: 20200115, end: 20200423
  4. LEUKERIN [Suspect]
     Active Substance: MERCAPTOPURINE
     Indication: COLITIS ULCERATIVE
     Dosage: 10 MG, 1X/DAY
     Route: 048
     Dates: start: 20170127, end: 20181001
  5. XELJANZ [Suspect]
     Active Substance: TOFACITINIB CITRATE
     Dosage: 5 MG, 1X/DAY
     Route: 048
     Dates: start: 20200424, end: 20200722
  6. PROGRAF [Suspect]
     Active Substance: TACROLIMUS
     Indication: COLITIS ULCERATIVE
     Dosage: 3 MG, 2X/DAY
     Route: 048
     Dates: start: 20181010, end: 20181128

REACTIONS (15)
  - Haemoglobin decreased [Recovering/Resolving]
  - Blood creatine phosphokinase decreased [Not Recovered/Not Resolved]
  - Platelet count decreased [Not Recovered/Not Resolved]
  - C-reactive protein increased [Recovered/Resolved]
  - Haematocrit decreased [Not Recovered/Not Resolved]
  - Blood glucose increased [Recovering/Resolving]
  - Eosinophil percentage increased [Unknown]
  - White blood cell count decreased [Recovered/Resolved]
  - Myelodysplastic syndrome [Not Recovered/Not Resolved]
  - Anaemia macrocytic [Recovering/Resolving]
  - Red blood cell count decreased [Not Recovered/Not Resolved]
  - Red blood cell count decreased [Recovering/Resolving]
  - Monocyte percentage increased [Unknown]
  - Blood creatine phosphokinase decreased [Not Recovered/Not Resolved]
  - Basophil percentage increased [Recovering/Resolving]

NARRATIVE: CASE EVENT DATE: 20200115
